FAERS Safety Report 8990549 (Version 15)
Quarter: 2014Q2

REPORT INFORMATION
  Report Type: Report from Study
  Country: CA (occurrence: CA)
  Receive Date: 20121228
  Receipt Date: 20140523
  Transmission Date: 20141212
  Serious: Yes (Other)
  Sender: FDA-Public Use
  Company Number: CA-ROCHE-1169212

PATIENT
  Age: 44 Year
  Sex: Male
  Weight: 80 kg

DRUGS (20)
  1. OMALIZUMAB [Suspect]
     Indication: ASTHMA
     Route: 058
     Dates: start: 20080806
  2. OMALIZUMAB [Suspect]
     Route: 058
     Dates: start: 20090409
  3. OMALIZUMAB [Suspect]
     Route: 065
     Dates: start: 20091028
  4. OMALIZUMAB [Suspect]
     Route: 065
     Dates: start: 20091125
  5. OMALIZUMAB [Suspect]
     Route: 058
     Dates: start: 20100414
  6. OMALIZUMAB [Suspect]
     Route: 058
     Dates: start: 20120312
  7. OMALIZUMAB [Suspect]
     Route: 058
     Dates: start: 20130128
  8. OMALIZUMAB [Suspect]
     Route: 058
     Dates: start: 20130521
  9. OMALIZUMAB [Suspect]
     Route: 058
     Dates: start: 20130815
  10. OMALIZUMAB [Suspect]
     Route: 058
     Dates: start: 20130909
  11. OMALIZUMAB [Suspect]
     Route: 058
     Dates: start: 20131008
  12. OMALIZUMAB [Suspect]
     Route: 058
     Dates: start: 20131021
  13. OMALIZUMAB [Suspect]
     Route: 065
     Dates: start: 20131118
  14. OMALIZUMAB [Suspect]
     Route: 058
     Dates: start: 20131216
  15. OMALIZUMAB [Suspect]
     Route: 058
     Dates: start: 20130702
  16. OMALIZUMAB [Suspect]
     Route: 058
     Dates: start: 20130827
  17. VENTOLIN [Concomitant]
  18. SYMBICORT [Concomitant]
  19. NASONEX [Concomitant]
  20. PREVACID [Concomitant]

REACTIONS (24)
  - Thalassaemia trait [Unknown]
  - Sinus disorder [Unknown]
  - Asthma [Unknown]
  - Chest discomfort [Unknown]
  - Nasopharyngitis [Unknown]
  - Tenderness [Unknown]
  - Sinus congestion [Unknown]
  - Malaise [Unknown]
  - Respiratory disorder [Unknown]
  - Oropharyngeal pain [Recovered/Resolved]
  - Fatigue [Unknown]
  - Injection site pain [Unknown]
  - Influenza like illness [Unknown]
  - Myalgia [Unknown]
  - Injection site swelling [Unknown]
  - Nasal congestion [Not Recovered/Not Resolved]
  - Cough [Not Recovered/Not Resolved]
  - Blood pressure increased [Unknown]
  - Injection site haemorrhage [Unknown]
  - Productive cough [Unknown]
  - Anaemia of chronic disease [Unknown]
  - Microcytosis [Unknown]
  - Iron deficiency [Unknown]
  - Throat irritation [Unknown]
